FAERS Safety Report 23626924 (Version 5)
Quarter: 2024Q4

REPORT INFORMATION
  Report Type: Spontaneous
  Country: CL (occurrence: CL)
  Receive Date: 20240313
  Receipt Date: 20241010
  Transmission Date: 20250114
  Serious: Yes (Other)
  Sender: PFIZER
  Company Number: CL-PFIZER INC-PV202400033593

PATIENT
  Age: 58 Year
  Sex: Female

DRUGS (14)
  1. IBRANCE [Suspect]
     Active Substance: PALBOCICLIB
     Indication: Breast cancer metastatic
     Dosage: 125 MG DAILY, CYCLIC
     Route: 048
  2. FASLODEX [Concomitant]
     Active Substance: FULVESTRANT
     Dosage: UNK
  3. CYCLOBENZAPRINE [Concomitant]
     Active Substance: CYCLOBENZAPRINE
     Dosage: 1/2 OR 1 DF AT NIGHT AS NEEDED, AS NEEDED
  4. DEPUROL [Concomitant]
     Dosage: 1 EVERY 12 HRS, 2X/DAY (RETARD)
  5. TRAMADOL [Concomitant]
     Active Substance: TRAMADOL
     Dosage: 1 EVERY 12 - 8 HRS
  6. VASELINE DERMATOLOGICA [Concomitant]
     Dosage: UNK, AS NEEDED (20 OR 30 ML AT NIGHT)
  7. BUPRENORPHINE [Concomitant]
     Active Substance: BUPRENORPHINE
     Dosage: 1 OR 2 PATCHES, CYCLIC (EVERY 3.5 DAYS)
  8. LEVOTHYROXINE [Concomitant]
     Active Substance: LEVOTHYROXINE
     Dosage: UNK, 1X/DAY
  9. METFORMIN [Concomitant]
     Active Substance: METFORMIN HYDROCHLORIDE
     Dosage: UNK, 1X/DAY
  10. HYDROCHLOROTHIAZIDE [Concomitant]
     Active Substance: HYDROCHLOROTHIAZIDE
     Dosage: UNK, 1X/DAY
  11. IBUPROFEN [Concomitant]
     Active Substance: IBUPROFEN
     Dosage: UNK, AS NEEDED (1 EVERY 8 HRS)
  12. ZOPICLONE [Concomitant]
     Active Substance: ZOPICLONE
     Dosage: UNK, 1X/DAY (1 AT NIGHT)
  13. KALOBA [PELARGONIUM SIDOIDES ROOT] [Concomitant]
     Dosage: 30 DROPS, 1X/DAY
  14. LETROZOLE [Concomitant]
     Active Substance: LETROZOLE
     Dosage: UNK, 1X/DAY

REACTIONS (14)
  - Diabetes mellitus [Unknown]
  - Arthralgia [Not Recovered/Not Resolved]
  - Gait disturbance [Unknown]
  - Overweight [Not Recovered/Not Resolved]
  - Haematoma [Unknown]
  - Skin lesion [Not Recovered/Not Resolved]
  - Impaired healing [Not Recovered/Not Resolved]
  - Diarrhoea [Recovered/Resolved]
  - Depressed mood [Not Recovered/Not Resolved]
  - Generalised oedema [Unknown]
  - Spinal pain [Unknown]
  - Tachycardia [Unknown]
  - Fall [Unknown]
  - Contusion [Unknown]

NARRATIVE: CASE EVENT DATE: 20240401
